FAERS Safety Report 16864743 (Version 1)
Quarter: 2019Q3

REPORT INFORMATION
  Report Type: Other
  Country: None (occurrence: CN)
  Receive Date: 20190929
  Receipt Date: 20190929
  Transmission Date: 20191005
  Serious: Yes (Life-Threatening, Other)
  Sender: FDA-Public Use
  Company Number: CN-JIANGSU HENGRUI MEDICINE CO., LTD.-2075027

PATIENT
  Age: 30 Year
  Sex: Female
  Weight: 73 kg

DRUGS (1)
  1. CISATRACURIUM BESYLATE INJECTION USP, 20 MG/10 ML (2 MG/ML) MULTI-DOSE [Suspect]
     Active Substance: CISATRACURIUM BESYLATE
     Indication: HYPOTONIA
     Route: 040
     Dates: start: 20190815, end: 20190815

REACTIONS (2)
  - Cough [Recovering/Resolving]
  - Bronchospasm [Recovering/Resolving]

NARRATIVE: CASE EVENT DATE: 20190815
